FAERS Safety Report 16762419 (Version 2)
Quarter: 2019Q3

REPORT INFORMATION
  Report Type: Spontaneous
  Country: US (occurrence: US)
  Receive Date: 20190831
  Receipt Date: 20190905
  Transmission Date: 20191005
  Serious: No
  Sender: FDA-Public Use
  Company Number: US-BIOGEN-2019BI00778930

PATIENT
  Sex: Female

DRUGS (3)
  1. TECFIDERA [Suspect]
     Active Substance: DIMETHYL FUMARATE
     Dosage: WEEK 1 TAKE 120MG BY?MOUTH IN THE EVENING?WEEK 2 TAKE 240MG?IN THE EVENING WEEK?3 TAKE 120MG IN T...
     Route: 048
  2. TECFIDERA [Suspect]
     Active Substance: DIMETHYL FUMARATE
     Indication: MULTIPLE SCLEROSIS
     Dosage: WEEK 1: 120MG ONCE DAILY IN PM, WEEK 2:?240MG ONCE IN THE EVENING, WEEK 3: 120MG IN AM AND 240MG PM
     Route: 048
     Dates: start: 20190807
  3. NEXPLANON [Concomitant]
     Active Substance: ETONOGESTREL
     Route: 065

REACTIONS (2)
  - Product dose omission [Unknown]
  - Constipation [Unknown]
